APPROVED DRUG PRODUCT: LASTACAFT
Active Ingredient: ALCAFTADINE
Strength: 0.25%
Dosage Form/Route: SOLUTION/DROPS;OPHTHALMIC
Application: N022134 | Product #001
Applicant: ABBVIE INC
Approved: Jul 28, 2010 | RLD: Yes | RS: Yes | Type: OTC

PATENTS:
Patent 8664215 | Expires: Dec 23, 2027
Patent 10617695 | Expires: Mar 19, 2027